FAERS Safety Report 5961573-0 (Version None)
Quarter: 2008Q4

REPORT INFORMATION
  Report Type: 
  Country: None (occurrence: None)
  Receive Date: 20081121
  Receipt Date: 20081114
  Transmission Date: 20090506
  Serious: Yes (Other)
  Sender: FDA-Public Use
  Company Number: B0546416A

PATIENT
  Sex: Male

DRUGS (3)
  1. CLENIL [Suspect]
     Indication: DRUG USE FOR UNKNOWN INDICATION
     Route: 055
     Dates: start: 20080101
  2. ALBUTEROL SULFATE [Concomitant]
  3. SALMETEROL [Concomitant]

REACTIONS (1)
  - PALPITATIONS [None]
